FAERS Safety Report 6390457-1 (Version None)
Quarter: 2009Q4

REPORT INFORMATION
  Report Type: 
  Country: None (occurrence: None)
  Receive Date: 20091006
  Receipt Date: 20090929
  Transmission Date: 20100525
  Serious: Yes (Hospitalization)
  Sender: FDA-Public Use
  Company Number: DE-BRISTOL-MYERS SQUIBB COMPANY-14801732

PATIENT
  Age: 67 Year
  Sex: Male
  Weight: 95 kg

DRUGS (3)
  1. CETUXIMAB [Suspect]
     Indication: GASTRIC CANCER
     Dosage: RECENT INF: 08SEP09
     Route: 042
     Dates: start: 20090714
  2. CISPLATIN [Suspect]
     Indication: GASTRIC CANCER
     Dosage: RECENT INF: 25AUG09
     Route: 042
     Dates: start: 20090714
  3. DOCETAXEL [Suspect]
     Indication: GASTRIC CANCER
     Dosage: RECENT INF: 25AUG09
     Route: 042
     Dates: start: 20090714

REACTIONS (3)
  - ANAEMIA [None]
  - RENAL FAILURE [None]
  - THROMBOSIS [None]
